FAERS Safety Report 4607026-3 (Version None)
Quarter: 2005Q1

REPORT INFORMATION
  Report Type: 
  Country: None (occurrence: None)
  Receive Date: 20050309
  Receipt Date: 20050222
  Transmission Date: 20050727
  Serious: Yes (Death)
  Sender: FDA-Public Use
  Company Number: USA050291655

PATIENT
  Sex: Female

DRUGS (2)
  1. STRATTERA [Suspect]
  2. TOPAMAX [Concomitant]

REACTIONS (1)
  - DEATH [None]
